FAERS Safety Report 8389943 (Version 2)
Quarter: 2013Q4

REPORT INFORMATION
  Report Type: Spontaneous
  Country: CN (occurrence: CN)
  Receive Date: 20120203
  Receipt Date: 20131104
  Transmission Date: 20140711
  Serious: Yes (Other)
  Sender: FDA-Public Use
  Company Number: PHHY2011CN112536

PATIENT
  Age: 69 Year
  Sex: Female

DRUGS (4)
  1. ACLASTA [Suspect]
     Indication: OSTEOPOROSIS
     Dosage: 5 MG, UNK
     Route: 042
     Dates: start: 20111216, end: 20111216
  2. ACLASTA [Suspect]
     Indication: ARRHYTHMIA
  3. CALCIUM [Concomitant]
  4. MELOXICAM [Concomitant]
     Dosage: UNK UKN, UNK

REACTIONS (8)
  - Drug-induced liver injury [Recovered/Resolved]
  - Liver injury [Unknown]
  - Hepatic function abnormal [Unknown]
  - Epigastric discomfort [Recovered/Resolved]
  - Pyrexia [Recovered/Resolved]
  - Asthenia [Recovered/Resolved]
  - Decreased appetite [Recovered/Resolved]
  - Fatigue [Recovered/Resolved]
